FAERS Safety Report 14639122 (Version 4)
Quarter: 2018Q3

REPORT INFORMATION
  Report Type: Spontaneous
  Country: US (occurrence: US)
  Receive Date: 20180315
  Receipt Date: 20180803
  Transmission Date: 20181010
  Serious: No
  Sender: FDA-Public Use
  Company Number: US-CELGENEUS-USA-20180304584

PATIENT
  Sex: Female
  Weight: 49.03 kg

DRUGS (1)
  1. REVLIMID [Suspect]
     Active Substance: LENALIDOMIDE
     Indication: PLASMA CELL MYELOMA
     Dosage: 10 MILLIGRAM
     Route: 048
     Dates: start: 20171122

REACTIONS (3)
  - Blood cholesterol increased [Not Recovered/Not Resolved]
  - Dizziness [Recovered/Resolved]
  - Snoring [Unknown]
